FAERS Safety Report 25733237 (Version 1)
Quarter: 2025Q3

REPORT INFORMATION
  Report Type: Report from Study
  Country: US (occurrence: US)
  Receive Date: 20250828
  Receipt Date: 20250828
  Transmission Date: 20251021
  Serious: Yes (Other)
  Sender: ACADIA PHARMACEUTICALS
  Company Number: US-ACADIA PHARMACEUTICALS INC.-ACA-2025-PIM-009551

PATIENT
  Age: 69 Year
  Sex: Male

DRUGS (9)
  1. NUPLAZID [Suspect]
     Active Substance: PIMAVANSERIN TARTRATE
     Indication: Parkinson^s disease psychosis
     Dosage: 34 MILLIGRAM, QD
     Route: 048
     Dates: start: 20240906, end: 20250812
  2. LISINOPRIL [Concomitant]
     Active Substance: LISINOPRIL
  3. DONEPEZIL [Concomitant]
     Active Substance: DONEPEZIL
  4. CARBIDOPA\LEVODOPA [Concomitant]
     Active Substance: CARBIDOPA\LEVODOPA
  5. AMANTADINE [Concomitant]
     Active Substance: AMANTADINE
  6. VITAMINS NOS [Concomitant]
     Active Substance: VITAMINS
  7. ROPINIROLE [Concomitant]
     Active Substance: ROPINIROLE
  8. SELEGILINE [Concomitant]
     Active Substance: SELEGILINE
  9. NAPROXEN [Concomitant]
     Active Substance: NAPROXEN

REACTIONS (1)
  - Hallucination, visual [Not Recovered/Not Resolved]

NARRATIVE: CASE EVENT DATE: 20250804
